FAERS Safety Report 5767278-3 (Version None)
Quarter: 2008Q2

REPORT INFORMATION
  Report Type: 
  Country: None (occurrence: None)
  Receive Date: 20080612
  Receipt Date: 20080610
  Transmission Date: 20081010
  Serious: Yes (Death)
  Sender: FDA-Public Use
  Company Number: JP-BAYER-200810991BYL

PATIENT
  Age: 82 Year
  Sex: Male
  Weight: 55 kg

DRUGS (6)
  1. AVELOX [Suspect]
     Indication: FOLLICULITIS
     Dosage: TOTAL DAILY DOSE: 400 MG  UNIT DOSE: 400 MG
     Route: 048
     Dates: start: 20080522, end: 20080522
  2. BLOPRESS [Concomitant]
     Indication: HYPERTENSION
     Dosage: TOTAL DAILY DOSE: 4 MG  UNIT DOSE: 4 MG
     Route: 048
     Dates: start: 20070609, end: 20080522
  3. ARICEPT [Concomitant]
     Indication: DEMENTIA ALZHEIMER'S TYPE
     Dosage: TOTAL DAILY DOSE: 3 MG  UNIT DOSE: 3 MG
     Route: 048
     Dates: start: 20070405, end: 20070503
  4. ARICEPT [Concomitant]
     Dosage: TOTAL DAILY DOSE: 5 MG  UNIT DOSE: 5 MG
     Route: 048
     Dates: start: 20070503, end: 20080522
  5. KETAS [Concomitant]
     Indication: CEREBRAL INFARCTION
     Dosage: TOTAL DAILY DOSE: 30 MG  UNIT DOSE: 10 MG
     Route: 048
     Dates: start: 20051127, end: 20080522
  6. VESICARE [Concomitant]
     Indication: HYPERTONIC BLADDER
     Dosage: TOTAL DAILY DOSE: 5 MG  UNIT DOSE: 5 MG
     Route: 048
     Dates: start: 20070405, end: 20080522

REACTIONS (1)
  - DEATH [None]
